FAERS Safety Report 19249661 (Version 4)
Quarter: 2023Q1

REPORT INFORMATION
  Report Type: Spontaneous
  Country: US (occurrence: US)
  Receive Date: 20210512
  Receipt Date: 20230104
  Transmission Date: 20230417
  Serious: Yes (Other)
  Sender: FDA-Public Use
  Company Number: US-PFIZER INC-2021391480

PATIENT
  Age: 64 Year
  Sex: Female

DRUGS (2)
  1. LORBRENA [Suspect]
     Active Substance: LORLATINIB
     Indication: Brain neoplasm
     Dosage: 100 MG, ONCE A DAY EVERY DAY
  2. PROMETHAZINE [Concomitant]
     Active Substance: PROMETHAZINE HYDROCHLORIDE
     Indication: Prophylaxis of nausea and vomiting
     Dosage: 25 MG, (ONCE OR TWICE A DAY)

REACTIONS (16)
  - Neuropathy peripheral [Unknown]
  - Peripheral swelling [Unknown]
  - Fluid retention [Unknown]
  - Insomnia [Unknown]
  - Dyspepsia [Unknown]
  - Gastrooesophageal reflux disease [Unknown]
  - Condition aggravated [Unknown]
  - Sleep talking [Unknown]
  - Fatigue [Unknown]
  - Depressed mood [Unknown]
  - Vomiting [Unknown]
  - Cough [Unknown]
  - Pain [Unknown]
  - Generalised oedema [Unknown]
  - Off label use [Unknown]
  - Product prescribing error [Unknown]
